FAERS Safety Report 26151095 (Version 2)
Quarter: 2025Q4

REPORT INFORMATION
  Report Type: Spontaneous
  Country: US (occurrence: US)
  Receive Date: 20251212
  Receipt Date: 20251216
  Transmission Date: 20260118
  Serious: No
  Sender: NOVARTIS
  Company Number: US-002147023-NVSC2025US190143

PATIENT
  Age: 69 Year
  Sex: Female

DRUGS (1)
  1. LEQVIO [Suspect]
     Active Substance: INCLISIRAN SODIUM
     Indication: Type IIa hyperlipidaemia
     Dosage: 284 MG, (INITIAL DOSE, AGAIN AT 3 MONTHS AND EVERY SIX MONTHS THEREAFTER)
     Route: 058
     Dates: start: 20240401, end: 20251209

REACTIONS (2)
  - Low density lipoprotein increased [Recovering/Resolving]
  - Disease progression [Recovering/Resolving]

NARRATIVE: CASE EVENT DATE: 20251001
